FAERS Safety Report 10737884 (Version 1)
Quarter: 2015Q1

REPORT INFORMATION
  Report Type: Spontaneous
  Country: US (occurrence: US)
  Receive Date: 20150126
  Receipt Date: 20150126
  Transmission Date: 20150721
  Serious: Yes (Hospitalization)
  Sender: FDA-Public Use
  Company Number: US-SA-2014SA076717

PATIENT
  Age: 66 Year
  Sex: Male

DRUGS (20)
  1. ATORVASTATIN [Concomitant]
     Active Substance: ATORVASTATIN
  2. VITAMIN D3 [Concomitant]
     Active Substance: CHOLECALCIFEROL
  3. MELOXICAM. [Concomitant]
     Active Substance: MELOXICAM
  4. CARVEDILOL. [Concomitant]
     Active Substance: CARVEDILOL
  5. HUMALOG [Suspect]
     Active Substance: INSULIN LISPRO
     Indication: DIABETES MELLITUS
     Dosage: DOSE: 2
     Route: 058
  6. TRAMADOL [Concomitant]
     Active Substance: TRAMADOL
  7. ZAROXOLYN [Concomitant]
     Active Substance: METOLAZONE
  8. ZOLPIDEM TARTRATE. [Concomitant]
     Active Substance: ZOLPIDEM TARTRATE
  9. AMIODARONE HYDROCHLORIDE. [Concomitant]
     Active Substance: AMIODARONE HYDROCHLORIDE
     Dates: start: 20130730
  10. LASIX [Suspect]
     Active Substance: FUROSEMIDE
     Indication: PRODUCT USED FOR UNKNOWN INDICATION
     Route: 065
  11. NOVOLIN R [Suspect]
     Active Substance: INSULIN HUMAN
     Indication: DIABETES MELLITUS
     Route: 058
     Dates: start: 20130730, end: 20130730
  12. OXYBUTYNIN HYDROCHLORIDE [Concomitant]
     Active Substance: OXYBUTYNIN CHLORIDE
  13. FISH OIL [Concomitant]
     Active Substance: FISH OIL
  14. GLUCOSAMINE [Concomitant]
     Active Substance: GLUCOSAMINE
  15. INSULIN [Concomitant]
     Active Substance: INSULIN NOS
     Indication: DIABETES MELLITUS
  16. PLACEBO [Suspect]
     Active Substance: UNSPECIFIED INGREDIENT
     Indication: TYPE 2 DIABETES MELLITUS
     Route: 065
     Dates: start: 20130627
  17. GABAPENTIN. [Concomitant]
     Active Substance: GABAPENTIN
  18. LAMOTRIGINE. [Concomitant]
     Active Substance: LAMOTRIGINE
  19. KETOCONAZOLE. [Concomitant]
     Active Substance: KETOCONAZOLE
  20. CENTRUM SILVER [Concomitant]
     Active Substance: VITAMINS

REACTIONS (2)
  - Chronic kidney disease [Recovered/Resolved]
  - Hypotension [Recovered/Resolved]

NARRATIVE: CASE EVENT DATE: 20130730
